FAERS Safety Report 19617890 (Version 1)
Quarter: 2021Q3

REPORT INFORMATION
  Report Type: Report from Study
  Country: US (occurrence: US)
  Receive Date: 20210727
  Receipt Date: 20210727
  Transmission Date: 20211014
  Serious: Yes (Hospitalization)
  Sender: FDA-Public Use
  Company Number: US-BRISTOL-MYERS SQUIBB COMPANY-BMS-2021-071365

PATIENT
  Age: 86 Year
  Sex: Female
  Weight: 81.63 kg

DRUGS (1)
  1. APIXABAN [Suspect]
     Active Substance: APIXABAN
     Indication: DEEP VEIN THROMBOSIS
     Dosage: 5 MILLIGRAM, BID
     Route: 048

REACTIONS (4)
  - Migraine [Unknown]
  - Lacrimation increased [Unknown]
  - Hypertension [Unknown]
  - Headache [Unknown]
